FAERS Safety Report 11314742 (Version 2)
Quarter: 2015Q3

REPORT INFORMATION
  Report Type: Spontaneous
  Country: US (occurrence: US)
  Receive Date: 20150727
  Receipt Date: 20150806
  Transmission Date: 20151125
  Serious: Yes (Other)
  Sender: FDA-Public Use
  Company Number: US-BAYER-2015-381013

PATIENT
  Age: 90 Year
  Sex: Male

DRUGS (2)
  1. FINASTERIDE. [Concomitant]
     Active Substance: FINASTERIDE
  2. CIPROFLOXACIN. [Suspect]
     Active Substance: CIPROFLOXACIN
     Dosage: 1 DF, BID
     Route: 048
     Dates: end: 20150721

REACTIONS (2)
  - Blood urine present [Recovered/Resolved]
  - Pyrexia [Recovered/Resolved]
